FAERS Safety Report 10254122 (Version 2)
Quarter: 2014Q3

REPORT INFORMATION
  Report Type: Spontaneous
  Country: FI (occurrence: FI)
  Receive Date: 20140623
  Receipt Date: 20140721
  Transmission Date: 20150326
  Serious: Yes (Other)
  Sender: FDA-Public Use
  Company Number: PHHY2014FI075664

PATIENT
  Age: 60 Year
  Sex: Female

DRUGS (7)
  1. TEGRETOL [Suspect]
     Active Substance: CARBAMAZEPINE
     Dosage: 200 MG, BID
     Dates: start: 2009
  2. LIPCUT [Suspect]
     Active Substance: SIMVASTATIN
     Indication: BLOOD CHOLESTEROL INCREASED
     Dosage: UNK UKN, UNK
     Dates: start: 2008
  3. LINATIL [Concomitant]
     Dosage: 5 MG, QD
     Dates: start: 2007
  4. TEGRETOL [Suspect]
     Active Substance: CARBAMAZEPINE
     Indication: EPILEPSY
     Dosage: 200 MG, BID
     Dates: start: 20080620, end: 2009
  5. PANADOL [Concomitant]
     Active Substance: ACETAMINOPHEN
     Dosage: 1 G, PRN
     Dates: start: 20070721
  6. LORATADINE. [Concomitant]
     Active Substance: LORATADINE
     Indication: SEASONAL ALLERGY
     Dosage: UNK UKN, UNK
  7. LORATADINE. [Concomitant]
     Active Substance: LORATADINE
     Dosage: UNK UKN, QD
     Dates: start: 201406

REACTIONS (20)
  - Convulsion [Unknown]
  - Mobility decreased [Not Recovered/Not Resolved]
  - Skin discolouration [Not Recovered/Not Resolved]
  - Brain hypoxia [Unknown]
  - Arrhythmia [Unknown]
  - Head injury [Unknown]
  - Alopecia [Unknown]
  - Feeling abnormal [Not Recovered/Not Resolved]
  - Back pain [Not Recovered/Not Resolved]
  - Acne [Not Recovered/Not Resolved]
  - Erythema [Not Recovered/Not Resolved]
  - Loss of consciousness [Unknown]
  - Syncope [Unknown]
  - Hypothyroidism [Not Recovered/Not Resolved]
  - Blood cholesterol increased [Unknown]
  - Nausea [Recovered/Resolved]
  - Ventricular hypertrophy [Not Recovered/Not Resolved]
  - Weight increased [Unknown]
  - Pruritus [Recovered/Resolved]
  - Urticaria [Not Recovered/Not Resolved]

NARRATIVE: CASE EVENT DATE: 2009
